FAERS Safety Report 13986684 (Version 2)
Quarter: 2017Q4

REPORT INFORMATION
  Report Type: Spontaneous
  Country: US (occurrence: US)
  Receive Date: 20170919
  Receipt Date: 20171108
  Transmission Date: 20180321
  Serious: No
  Sender: FDA-Public Use
  Company Number: US-GLAXOSMITHKLINE-US2017GSK144482

PATIENT
  Sex: Female

DRUGS (1)
  1. IMITREX [Suspect]
     Active Substance: SUMATRIPTAN SUCCINATE
     Indication: MIGRAINE
     Dosage: 1 DF, PRN
     Route: 048
     Dates: start: 1997

REACTIONS (2)
  - Drug ineffective [Recovered/Resolved]
  - Product label confusion [Not Recovered/Not Resolved]

NARRATIVE: CASE EVENT DATE: 1997
